FAERS Safety Report 9364599 (Version 6)
Quarter: 2014Q2

REPORT INFORMATION
  Report Type: Spontaneous
  Country: IE (occurrence: IE)
  Receive Date: 20130624
  Receipt Date: 20140430
  Transmission Date: 20141212
  Serious: Yes (Hospitalization, Other)
  Sender: FDA-Public Use
  Company Number: PHFR2013IE003557

PATIENT
  Age: 59 Year
  Sex: Female

DRUGS (12)
  1. CLOZARIL [Suspect]
     Indication: SCHIZOPHRENIA
     Dosage: UNK
     Route: 048
     Dates: start: 20120213
  2. CLOZARIL [Suspect]
     Indication: SCHIZOAFFECTIVE DISORDER
     Dosage: 200 MG, BID
     Route: 048
  3. LAMICTAL [Concomitant]
     Indication: SCHIZOAFFECTIVE DISORDER
     Dosage: 500 MG, DAILY
     Route: 048
  4. ATIVAN [Concomitant]
     Indication: SCHIZOAFFECTIVE DISORDER
     Dosage: 1 MG, BID
     Route: 048
  5. NITROFURANTOIN [Concomitant]
     Indication: URINARY TRACT INFECTION
     Dosage: 100 MG, DAILY
     Route: 048
  6. TINZAPARIN [Concomitant]
     Dosage: 3500 IU, QD
     Route: 058
  7. SENNA [Concomitant]
     Dosage: UNK
  8. SODIUM VALPROATE [Concomitant]
     Dosage: 500 MG, BID
     Route: 048
  9. RENILAN [Concomitant]
     Dosage: UNK ONCE DAY
  10. PROCAL [Concomitant]
     Dosage: 30 ML, TID
     Route: 048
  11. NUTRITION SUPPLEMENTS [Concomitant]
     Dosage: UNK UKN, UNK
  12. LORAZEPAM [Concomitant]
     Dosage: UNK UKN, UNK

REACTIONS (16)
  - Breast cancer [Recovering/Resolving]
  - Renal injury [Recovered/Resolved]
  - Oedema [Unknown]
  - Dehydration [Unknown]
  - Poverty of speech [Unknown]
  - Depressed level of consciousness [Unknown]
  - Sepsis [Unknown]
  - C-reactive protein increased [Unknown]
  - White blood cell count increased [Unknown]
  - Circulatory collapse [Recovering/Resolving]
  - Haemoglobin decreased [Unknown]
  - Renal failure acute [Recovering/Resolving]
  - Fluid imbalance [Unknown]
  - Hypertension [Unknown]
  - Schizophrenia [Recovering/Resolving]
  - Wound infection [Unknown]
